FAERS Safety Report 6820002-5 (Version None)
Quarter: 2010Q3

REPORT INFORMATION
  Report Type: 
  Country: None (occurrence: None)
  Receive Date: 20100707
  Receipt Date: 20100629
  Transmission Date: 20110219
  Serious: Yes (Other)
  Sender: FDA-Public Use
  Company Number: US-ROCHE-712919

PATIENT

DRUGS (1)
  1. AVASTIN [Suspect]
     Dosage: FORM: INJECTION
     Route: 065

REACTIONS (1)
  - BLINDNESS [None]
